FAERS Safety Report 12171662 (Version 1)
Quarter: 2016Q1

REPORT INFORMATION
  Report Type: Spontaneous
  Country: CO (occurrence: CO)
  Receive Date: 20160311
  Receipt Date: 20160311
  Transmission Date: 20160526
  Serious: Yes (Other)
  Sender: FDA-Public Use
  Company Number: CO-JNJFOC-20160304751

PATIENT

DRUGS (1)
  1. INFLIXIMAB, RECOMBINANT [Suspect]
     Active Substance: INFLIXIMAB
     Indication: RHEUMATOID ARTHRITIS
     Route: 042

REACTIONS (14)
  - Candida infection [Unknown]
  - Tachycardia [Unknown]
  - Pneumonia [Unknown]
  - Angioedema [Unknown]
  - Psoriasis [Unknown]
  - Blood pressure increased [Unknown]
  - Herpes zoster [Unknown]
  - Cellulitis [Unknown]
  - Myalgia [Unknown]
  - Cerebrovascular accident [Unknown]
  - Arthritis bacterial [Unknown]
  - Dermatitis [Unknown]
  - Diarrhoea [Unknown]
  - Arthralgia [Unknown]
